FAERS Safety Report 25249801 (Version 1)
Quarter: 2025Q2

REPORT INFORMATION
  Report Type: Spontaneous
  Country: US (occurrence: None)
  Receive Date: 20250428
  Receipt Date: 20250428
  Transmission Date: 20250717
  Serious: Yes (Hospitalization)
  Sender: FDA-CTU
  Company Number: None

PATIENT
  Age: 44 Year
  Sex: Female
  Weight: 64.8 kg

DRUGS (1)
  1. CROMOLYN SODIUM [Suspect]
     Active Substance: CROMOLYN SODIUM
     Indication: Mastocytosis
     Dosage: OTHER QUANTITY : 96 CAPSULE(S);?FREQUENCY : 4 TIMES A DAY;?
     Route: 048
     Dates: start: 20250412, end: 20250413

REACTIONS (5)
  - Tremor [None]
  - Oesophagitis [None]
  - Weight decreased [None]
  - Visual impairment [None]
  - Condition aggravated [None]

NARRATIVE: CASE EVENT DATE: 20250413
